FAERS Safety Report 11684951 (Version 1)
Quarter: 2015Q4

REPORT INFORMATION
  Report Type: Spontaneous
  Country: CA (occurrence: CA)
  Receive Date: 20151030
  Receipt Date: 20151030
  Transmission Date: 20160304
  Serious: Yes (Other)
  Sender: FDA-Public Use
  Company Number: CA-ROCHE-1650396

PATIENT

DRUGS (2)
  1. XENICAL [Suspect]
     Active Substance: ORLISTAT
     Indication: PRODUCT USED FOR UNKNOWN INDICATION
     Route: 048
  2. METFORMIN [Interacting]
     Active Substance: METFORMIN HYDROCHLORIDE
     Indication: PRODUCT USED FOR UNKNOWN INDICATION
     Route: 048

REACTIONS (4)
  - Glomerular filtration rate decreased [Unknown]
  - Renal impairment [Unknown]
  - Renal failure [Unknown]
  - Drug interaction [Unknown]
